FAERS Safety Report 7275694 (Version 2)
Quarter: 2013Q1

REPORT INFORMATION
  Report Type: Spontaneous
  Country: US (occurrence: None)
  Receive Date: 20070821
  Receipt Date: 20121207
  Transmission Date: 20140127
  Serious: No
  Sender: FDA-Public Use
  Company Number: 20074026

PATIENT
  Age: 44 Year
  Sex: Female

DRUGS (1)
  1. LIORESAL [Suspect]
     Indication: MUSCLE SPASTICITY
     Dosage: 1600  MCG, DAILY, INTRATHECAL
     Route: 037

REACTIONS (4)
  - Oxygen saturation decreased [None]
  - Muscle spasticity [None]
  - Disease recurrence [None]
  - Incorrect dose administered [None]
